FAERS Safety Report 19155983 (Version 1)
Quarter: 2021Q2

REPORT INFORMATION
  Report Type: Spontaneous
  Country: US (occurrence: US)
  Receive Date: 20210419
  Receipt Date: 20210419
  Transmission Date: 20210717
  Serious: Yes (Other)
  Sender: FDA-Public Use
  Company Number: US-PFIZER INC-2021381614

PATIENT
  Age: 63 Year
  Sex: Female

DRUGS (1)
  1. XELJANZ XR [Suspect]
     Active Substance: TOFACITINIB CITRATE
     Dosage: UNK
     Dates: start: 2018

REACTIONS (4)
  - Blood calcium increased [Unknown]
  - Salivary gland adenoma [Unknown]
  - Rib fracture [Unknown]
  - Parathyroid tumour [Unknown]

NARRATIVE: CASE EVENT DATE: 2019
